FAERS Safety Report 7419722-3 (Version None)
Quarter: 2011Q2

REPORT INFORMATION
  Report Type: 
  Country: None (occurrence: None)
  Receive Date: 20110418
  Receipt Date: 20110411
  Transmission Date: 20111010
  Serious: Yes (Hospitalization)
  Sender: FDA-Public Use
  Company Number: DE-ELI_LILLY_AND_COMPANY-DE201104003153

PATIENT
  Sex: Female

DRUGS (4)
  1. METFORMIN HCL [Concomitant]
     Dosage: UNK
     Dates: start: 20100101
  2. BYETTA [Suspect]
     Indication: DIABETES MELLITUS
     Dosage: 10 UG, UNK
     Route: 058
     Dates: start: 20110301
  3. ANTIHYPERTENSIVES [Concomitant]
  4. ANALGESICS [Concomitant]
     Dosage: UNK
     Dates: start: 20110402

REACTIONS (5)
  - HERPES ZOSTER [None]
  - PAIN [None]
  - PYREXIA [None]
  - BLOOD PRESSURE INCREASED [None]
  - BLOOD GLUCOSE INCREASED [None]
